FAERS Safety Report 5691811-3 (Version None)
Quarter: 2008Q2

REPORT INFORMATION
  Report Type: 
  Country: None (occurrence: None)
  Receive Date: 20080401
  Receipt Date: 20080401
  Transmission Date: 20081010
  Serious: Yes (Other)
  Sender: FDA-Public Use
  Company Number: None

PATIENT
  Age: 9 Year
  Sex: Male
  Weight: 27.2158 kg

DRUGS (1)
  1. SINGULAIR [Suspect]
     Indication: ASTHMA
     Dosage: 1 TABLET DAILY PO
     Route: 048
     Dates: start: 20080306, end: 20080327

REACTIONS (10)
  - CRYING [None]
  - DISTURBANCE IN ATTENTION [None]
  - FRUSTRATION [None]
  - HEAD TITUBATION [None]
  - HEADACHE [None]
  - INITIAL INSOMNIA [None]
  - MIDDLE INSOMNIA [None]
  - NEGATIVE THOUGHTS [None]
  - TREMOR [None]
  - VISION BLURRED [None]
